FAERS Safety Report 4545026-2 (Version None)
Quarter: 2005Q1

REPORT INFORMATION
  Report Type: 
  Country: None (occurrence: None)
  Receive Date: 20050103
  Receipt Date: 20050103
  Transmission Date: 20050727
  Serious: Yes (Hospitalization)
  Sender: FDA-Public Use
  Company Number: None

PATIENT
  Sex: Male
  Weight: 78 kg

DRUGS (2)
  1. MORPHINE [Suspect]
     Indication: PAIN
     Dosage: 10MG  PO Q4H PRN
     Route: 048
     Dates: start: 20031109, end: 20031113
  2. NAPROXEN [Concomitant]

REACTIONS (3)
  - CONFUSIONAL STATE [None]
  - HYPOXIA [None]
  - RENAL FAILURE ACUTE [None]
